FAERS Safety Report 9771782 (Version 1)
Quarter: 2013Q4

REPORT INFORMATION
  Report Type: Spontaneous
  Country: ES (occurrence: ES)
  Receive Date: 20131219
  Receipt Date: 20131219
  Transmission Date: 20140711
  Serious: Yes (Other)
  Sender: FDA-Public Use
  Company Number: ES-AMGEN-ESPSP2013088839

PATIENT
  Age: 40 Year
  Sex: Female

DRUGS (5)
  1. ENBREL [Suspect]
     Indication: RHEUMATOID ARTHRITIS
     Dosage: 50 MG, WEEKLY
     Route: 058
     Dates: start: 20130929, end: 20131013
  2. IBUPROFEN [Concomitant]
     Indication: RHEUMATOID ARTHRITIS
     Dosage: 600 MG, AS NEEDED
     Route: 048
  3. DEFLAZACORT [Concomitant]
     Indication: RHEUMATOID ARTHRITIS
     Dosage: 6 MG, 2X/DAY
     Route: 048
  4. NUVARING [Concomitant]
     Dosage: UNK, MONTHLY
     Route: 067
  5. CALCIUM WITH VITAMIN D             /01233101/ [Concomitant]
     Indication: RHEUMATOID ARTHRITIS
     Dosage: 1 DF, 1X/DAY
     Route: 048

REACTIONS (3)
  - Oedema peripheral [Recovered/Resolved]
  - Lymphoedema [Recovered/Resolved]
  - Injection site erythema [Recovered/Resolved]
